FAERS Safety Report 6268193-1 (Version None)
Quarter: 2009Q3

REPORT INFORMATION
  Report Type: 
  Country: None (occurrence: None)
  Receive Date: 20090714
  Receipt Date: 20090714
  Transmission Date: 20100115
  Serious: No
  Sender: FDA-Public Use
  Company Number: None

PATIENT
  Age: 76 Year
  Sex: Female
  Weight: 38.5557 kg

DRUGS (2)
  1. CARBOPLATIN [Suspect]
     Indication: LUNG NEOPLASM MALIGNANT
     Dosage: 175 MG QOW IVSS
     Route: 042
     Dates: start: 20090501, end: 20090713
  2. CARBOPLATIN [Suspect]
     Indication: METASTASES TO LIVER
     Dosage: 175 MG QOW IVSS
     Route: 042
     Dates: start: 20090501, end: 20090713

REACTIONS (4)
  - ABDOMINAL PAIN [None]
  - DYSPNOEA [None]
  - FLUSHING [None]
  - NAUSEA [None]
